FAERS Safety Report 4848847-1 (Version None)
Quarter: 2005Q4

REPORT INFORMATION
  Report Type: 
  Country: None (occurrence: None)
  Receive Date: 20051121
  Receipt Date: 20051003
  Transmission Date: 20060501
  Serious: Yes (Death)
  Sender: FDA-Public Use
  Company Number: 05P-163-0309178-00

PATIENT
  Age: 90 Year
  Sex: Male

DRUGS (1)
  1. TRICOR [Suspect]
     Dosage: 145 MG, 1 IN 1 D, PER ORAL
     Route: 048
     Dates: start: 20050301

REACTIONS (1)
  - DEATH [None]
